FAERS Safety Report 7809289-X (Version None)
Quarter: 2011Q4

REPORT INFORMATION
  Report Type: 
  Country: None (occurrence: None)
  Receive Date: 20111012
  Receipt Date: 20111004
  Transmission Date: 20120403
  Serious: Yes (Hospitalization, Other)
  Sender: FDA-Public Use
  Company Number: US-ABBOTT-11P-163-0860870-00

PATIENT
  Sex: Female
  Weight: 53.572 kg

DRUGS (3)
  1. LORTAB [Concomitant]
     Indication: PAIN
  2. HUMIRA [Suspect]
     Indication: CROHN'S DISEASE
     Route: 058
     Dates: start: 20070101, end: 20100907
  3. LEVOTHYROXINE SODIUM [Concomitant]
     Indication: HYPOTHYROIDISM

REACTIONS (6)
  - HYPOTENSION [None]
  - ABDOMINAL PAIN [None]
  - ILEAL PERFORATION [None]
  - INTESTINAL INFARCTION [None]
  - CROHN'S DISEASE [None]
  - FEELING COLD [None]
